FAERS Safety Report 24726604 (Version 1)
Quarter: 2024Q4

REPORT INFORMATION
  Report Type: Other
  Country: US (occurrence: US)
  Receive Date: 20241212
  Receipt Date: 20241212
  Transmission Date: 20250115
  Serious: No
  Sender: SIGA TECHNOLOGIES, INC.
  Company Number: US-SIGA Technologies, Inc.-2166916

PATIENT
  Age: 33 Year
  Sex: Male

DRUGS (11)
  1. TPOXX [Suspect]
     Active Substance: TECOVIRIMAT
     Indication: Monkeypox
     Dates: start: 20220806, end: 20220904
  2. BICTEGRAVIR\EMTRICITABINE\TENOFOVIR ALAFENAMIDE [Concomitant]
     Active Substance: BICTEGRAVIR\EMTRICITABINE\TENOFOVIR ALAFENAMIDE
  3. SULFAMETHOXAZOLE AND TRIMETHOPRIM [Concomitant]
     Active Substance: SULFAMETHOXAZOLE\TRIMETHOPRIM
  4. MICAFUNGIN [Concomitant]
     Active Substance: MICAFUNGIN SODIUM
  5. FLUCONAZOLE [Concomitant]
     Active Substance: FLUCONAZOLE
  6. VANCOMYCIN HYDROCHLORIDE [Concomitant]
     Active Substance: VANCOMYCIN HYDROCHLORIDE
  7. VANCOMYCIN [Concomitant]
     Active Substance: VANCOMYCIN
  8. MEROPENEM [Concomitant]
     Active Substance: MEROPENEM
  9. METRONIDAZOLE [Concomitant]
     Active Substance: METRONIDAZOLE
  10. CEFTRIAXONE [Concomitant]
     Active Substance: CEFTRIAXONE
  11. atazanavir/ritonavir/dolutegravir/tenofovir alafenamide [Concomitant]

REACTIONS (1)
  - Drug resistance [Unknown]
